FAERS Safety Report 21944544 (Version 4)
Quarter: 2023Q2

REPORT INFORMATION
  Report Type: Spontaneous
  Country: US (occurrence: US)
  Receive Date: 20230202
  Receipt Date: 20230531
  Transmission Date: 20230722
  Serious: No
  Sender: FDA-Public Use
  Company Number: US-PFIZER INC-PV202300015962

PATIENT
  Age: 24 Year
  Sex: Male
  Weight: 99.34 kg

DRUGS (1)
  1. GENOTROPIN [Suspect]
     Active Substance: SOMATROPIN
     Dosage: UNK (0.2MG ALTERNATING WITH 0.4MG)

REACTIONS (3)
  - Poor quality device used [Unknown]
  - Device breakage [Unknown]
  - Device information output issue [Unknown]
